FAERS Safety Report 7973661-8 (Version None)
Quarter: 2011Q4

REPORT INFORMATION
  Report Type: 
  Country: None (occurrence: None)
  Receive Date: 20111213
  Receipt Date: 20111201
  Transmission Date: 20120403
  Serious: Yes (Hospitalization, Other)
  Sender: FDA-Public Use
  Company Number: US-ELI_LILLY_AND_COMPANY-US201112001068

PATIENT
  Sex: Male

DRUGS (2)
  1. HUMULIN 70/30 [Suspect]
     Indication: DIABETES MELLITUS
     Dosage: 12 U, BID
  2. HUMULIN 70/30 [Suspect]
     Dosage: 12 U, BID

REACTIONS (4)
  - THERAPEUTIC RESPONSE DELAYED [None]
  - BLOOD GLUCOSE DECREASED [None]
  - MEDICATION ERROR [None]
  - CAROTID ARTERY OCCLUSION [None]
